FAERS Safety Report 8301883-5 (Version None)
Quarter: 2012Q2

REPORT INFORMATION
  Report Type: 
  Country: None (occurrence: None)
  Receive Date: 20120420
  Receipt Date: 20120419
  Transmission Date: 20120825
  Serious: Yes (Other)
  Sender: FDA-Public Use
  Company Number: US-GLAXOSMITHKLINE-A0974336A

PATIENT
  Age: 62 Year
  Sex: Female

DRUGS (3)
  1. NICODERM CQ [Suspect]
     Indication: SMOKING CESSATION THERAPY
     Route: 062
     Dates: start: 20120402, end: 20120418
  2. UNKNOWN DRUG FOR ANXIETY [Suspect]
     Indication: ANXIETY
  3. ANTI-HYPERTENSIVE [Suspect]
     Indication: HYPERTENSION

REACTIONS (15)
  - HEART RATE IRREGULAR [None]
  - EXPIRED DRUG ADMINISTERED [None]
  - SUICIDAL IDEATION [None]
  - INFLUENZA LIKE ILLNESS [None]
  - MALAISE [None]
  - PALPITATIONS [None]
  - NAUSEA [None]
  - HEART RATE INCREASED [None]
  - DRUG INTERACTION [None]
  - ABDOMINAL DISCOMFORT [None]
  - RASH [None]
  - ASTHENIA [None]
  - NIGHTMARE [None]
  - BEDRIDDEN [None]
  - DIZZINESS [None]
